FAERS Safety Report 9563126 (Version 2)
Quarter: 2013Q3

REPORT INFORMATION
  Report Type: Spontaneous
  Country: US (occurrence: US)
  Receive Date: 20130927
  Receipt Date: 20130927
  Transmission Date: 20140515
  Serious: Yes (Other)
  Sender: FDA-Public Use
  Company Number: US-BRISTOL-MYERS SQUIBB COMPANY-17277955

PATIENT
  Age: 62 Year
  Sex: Male

DRUGS (5)
  1. ONGLYZA TABS [Suspect]
     Indication: DIABETES MELLITUS
  2. ACETAMINOPHEN [Concomitant]
  3. IBUPROFEN [Concomitant]
  4. MICARDIS [Concomitant]
  5. VALIUM [Concomitant]

REACTIONS (1)
  - Pancreatitis [Recovered/Resolved]
